FAERS Safety Report 16589494 (Version 2)
Quarter: 2019Q4

REPORT INFORMATION
  Report Type: Spontaneous
  Country: FR (occurrence: FR)
  Receive Date: 20190718
  Receipt Date: 20191026
  Transmission Date: 20200122
  Serious: Yes (Hospitalization, Disabling)
  Sender: FDA-Public Use
  Company Number: FR-ACCORD-138762

PATIENT
  Age: 96 Year
  Sex: Female
  Weight: 56 kg

DRUGS (1)
  1. MITOMYCIN. [Suspect]
     Active Substance: MITOMYCIN
     Indication: CONJUNCTIVAL MELANOMA
     Route: 047
     Dates: start: 201804

REACTIONS (3)
  - Off label use [Unknown]
  - Ulcerative keratitis [Not Recovered/Not Resolved]
  - Keratitis [Not Recovered/Not Resolved]

NARRATIVE: CASE EVENT DATE: 2018
